FAERS Safety Report 16848846 (Version 1)
Quarter: 2019Q3

REPORT INFORMATION
  Report Type: Report from Study
  Country: JP (occurrence: JP)
  Receive Date: 20190925
  Receipt Date: 20190925
  Transmission Date: 20191005
  Serious: Yes (Death, Hospitalization)
  Sender: FDA-Public Use
  Company Number: JP-ROCHE-2415911

PATIENT

DRUGS (1)
  1. RITUXIMAB. [Suspect]
     Active Substance: RITUXIMAB
     Indication: LYMPHOMA
     Route: 041

REACTIONS (6)
  - Hypogammaglobulinaemia [Unknown]
  - Peritonitis [Unknown]
  - Pneumonia [Unknown]
  - Enterocolitis [Unknown]
  - Infection [Fatal]
  - Herpes zoster [Unknown]
